FAERS Safety Report 7963438-1 (Version None)
Quarter: 2011Q4

REPORT INFORMATION
  Report Type: 
  Country: None (occurrence: None)
  Receive Date: 20111208
  Receipt Date: 20111128
  Transmission Date: 20120403
  Serious: No
  Sender: FDA-Public Use
  Company Number: US-BAYER-2011-114501

PATIENT
  Age: 75 Year
  Sex: Male

DRUGS (10)
  1. NASONEX [Concomitant]
  2. LEVITRA [Suspect]
     Indication: ERECTILE DYSFUNCTION
     Dosage: 20 MG, AS NEEDED ABOUT ONCE A WEEK
  3. AVODART [Concomitant]
  4. PREDNISONE [Concomitant]
  5. LIPITOR [Concomitant]
  6. STAXYN [Concomitant]
     Indication: ERECTILE DYSFUNCTION
     Dosage: 10 MF, AS NEEDED ABOUT ONCE A WEEK
  7. ALLEGRA [Concomitant]
  8. ADVAIR DISKUS 100/50 [Concomitant]
  9. SINGULAIR [Concomitant]
  10. COZAAR [Concomitant]

REACTIONS (1)
  - ABDOMINAL DISCOMFORT [None]
